FAERS Safety Report 12267532 (Version 5)
Quarter: 2016Q4

REPORT INFORMATION
  Report Type: Report from Study
  Country: US (occurrence: US)
  Receive Date: 20160414
  Receipt Date: 20161004
  Transmission Date: 20170207
  Serious: Yes (Hospitalization)
  Sender: FDA-Public Use
  Company Number: US-SA-CAMP-1002648

PATIENT
  Age: 41 Year
  Sex: Female
  Weight: 69.84 kg

DRUGS (11)
  1. MODAFINIL. [Concomitant]
     Active Substance: MODAFINIL
     Indication: FATIGUE
     Dosage: 100 MG, QD
     Route: 048
     Dates: start: 20100101
  2. CALCIUM CITRATE [Concomitant]
     Active Substance: CALCIUM CITRATE
     Indication: NUTRITIONAL SUPPLEMENTATION
     Dosage: 600 MG, QD
     Route: 048
     Dates: start: 20121214
  3. MAGNESIUM [Concomitant]
     Active Substance: MAGNESIUM
     Indication: PROPHYLAXIS
     Dosage: 400 MG, QD, 1 TABLET
     Route: 048
     Dates: start: 20120726
  4. PHOSPHORUS [Concomitant]
     Active Substance: PHOSPHORUS
     Indication: PROPHYLAXIS
     Route: 048
     Dates: start: 20110831
  5. ALEMTUZUMAB [Suspect]
     Active Substance: ALEMTUZUMAB
     Indication: MULTIPLE SCLEROSIS
     Dosage: INTENDED DOSE: 60 MG
     Route: 065
     Dates: start: 20090608, end: 20090612
  6. PROVIGIL [Concomitant]
     Active Substance: MODAFINIL
     Indication: PROPHYLAXIS
     Route: 048
     Dates: start: 20100101
  7. VITAMIN D [Concomitant]
     Active Substance: CHOLECALCIFEROL
     Indication: PROPHYLAXIS
     Dosage: DOSE:5000 IU/L
     Route: 048
     Dates: start: 20100715
  8. CULTURELLE [Concomitant]
     Active Substance: LACTOBACILLUS RHAMNOSUS
     Indication: PROPHYLAXIS
     Route: 048
     Dates: start: 20110818
  9. MAGNESIUM [Concomitant]
     Active Substance: MAGNESIUM
     Indication: NUTRITIONAL SUPPLEMENTATION
     Dosage: 400 MG, QD, 1 TABLET
     Route: 048
     Dates: start: 20120726
  10. VITAMIN D3 [Concomitant]
     Active Substance: CHOLECALCIFEROL
     Indication: NUTRITIONAL SUPPLEMENTATION
     Dosage: 1000 MG, QD
     Route: 048
     Dates: start: 20100715
  11. ALEMTUZUMAB [Suspect]
     Active Substance: ALEMTUZUMAB
     Indication: MULTIPLE SCLEROSIS
     Dosage: INTENDED DOSE: 36 MG
     Route: 065
     Dates: start: 20100601, end: 20100603

REACTIONS (1)
  - Thyroidectomy [Recovered/Resolved]

NARRATIVE: CASE EVENT DATE: 20121213
